FAERS Safety Report 9935818 (Version 1)
Quarter: 2014Q1

REPORT INFORMATION
  Report Type: Spontaneous
  Country: US (occurrence: US)
  Receive Date: 20140228
  Receipt Date: 20140228
  Transmission Date: 20141002
  Serious: No
  Sender: FDA-Public Use
  Company Number: US-AMGEN-USASP2013070542

PATIENT
  Age: 37 Year
  Sex: Female

DRUGS (1)
  1. ENBREL [Suspect]
     Indication: RHEUMATOID ARTHRITIS
     Dosage: 50 MG, WEEKLY
     Route: 058
     Dates: start: 201303

REACTIONS (4)
  - Migraine [Not Recovered/Not Resolved]
  - Bronchitis [Not Recovered/Not Resolved]
  - Ear infection [Not Recovered/Not Resolved]
  - Sinusitis [Not Recovered/Not Resolved]
